FAERS Safety Report 5205203-4 (Version None)
Quarter: 2007Q1

REPORT INFORMATION
  Report Type: 
  Country: None (occurrence: None)
  Receive Date: 20070108
  Receipt Date: 20061229
  Transmission Date: 20070707
  Serious: Yes (Disabling)
  Sender: FDA-Public Use
  Company Number: 2007AL000000

PATIENT
  Age: 69 Year
  Sex: Female

DRUGS (9)
  1. DILTIAZEM HCL [Suspect]
     Indication: ANGINA PECTORIS
     Dosage: 240 MG; QD; PO
     Route: 048
     Dates: start: 20060301, end: 20060401
  2. AMLODIPINE [Concomitant]
  3. LISINOPRIL [Concomitant]
  4. LEVOTHYROXINE SODIUM [Concomitant]
  5. FRUSEMIDE [Concomitant]
  6. GLICLAZIDE [Concomitant]
  7. METFORMIN HCL [Concomitant]
  8. SIMVASTATIN [Concomitant]
  9. AST-120 [Concomitant]

REACTIONS (2)
  - AMNESIA [None]
  - HALLUCINATION [None]
